FAERS Safety Report 8237348-9 (Version None)
Quarter: 2012Q1

REPORT INFORMATION
  Report Type: 
  Country: None (occurrence: None)
  Receive Date: 20120327
  Receipt Date: 20120313
  Transmission Date: 20120608
  Serious: Yes (Death)
  Sender: FDA-Public Use
  Company Number: JP-NOVOPROD-347398

PATIENT
  Age: 82 Year
  Sex: Male

DRUGS (1)
  1. NOVORAPID 30 MIX CHU FLEXPEN [Suspect]
     Indication: DIABETES MELLITUS
     Dosage: /SC
     Route: 058

REACTIONS (3)
  - BACTERIAL SEPSIS [None]
  - PANCREATIC CARCINOMA [None]
  - HYPOGLYCAEMIC ENCEPHALOPATHY [None]
